FAERS Safety Report 8618529-9 (Version None)
Quarter: 2012Q3

REPORT INFORMATION
  Report Type: 
  Country: None (occurrence: None)
  Receive Date: 20120814
  Receipt Date: 20120814
  Transmission Date: 20120928
  Serious: Yes (Hospitalization)
  Sender: FDA-Public Use
  Company Number: None

PATIENT
  Age: 79 Year
  Sex: Female
  Weight: 50 kg

DRUGS (7)
  1. GABAPENTIN [Concomitant]
  2. SERTRALINE HYDROCHLORIDE [Concomitant]
  3. ASPIRIN [Concomitant]
  4. COMBIVENT [Concomitant]
  5. PRAVASTATIN [Concomitant]
  6. XARELTO [Suspect]
     Indication: THROMBOSIS PROPHYLAXIS
  7. NORCO [Concomitant]

REACTIONS (1)
  - HAEMATOCHEZIA [None]
